FAERS Safety Report 14570017 (Version 1)
Quarter: 2018Q1

REPORT INFORMATION
  Report Type: Report from Study
  Country: US (occurrence: US)
  Receive Date: 20180225
  Receipt Date: 20180225
  Transmission Date: 20180509
  Serious: No
  Sender: FDA-Public Use
  Company Number: PHEH2018US007607

PATIENT
  Age: 35 Year
  Sex: Female

DRUGS (1)
  1. COSENTYX [Suspect]
     Active Substance: SECUKINUMAB
     Indication: PSORIATIC ARTHROPATHY
     Dosage: 150 MG, QMO
     Route: 058
     Dates: start: 20180213

REACTIONS (2)
  - Inappropriate schedule of drug administration [Unknown]
  - Pruritus [Unknown]

NARRATIVE: CASE EVENT DATE: 20180213
